FAERS Safety Report 9041002 (Version 1)
Quarter: 2013Q1

REPORT INFORMATION
  Report Type: Report from Study
  Country: US (occurrence: US)
  Receive Date: 20130129
  Receipt Date: 20130129
  Transmission Date: 20140127
  Serious: No
  Sender: FDA-Public Use
  Company Number: US-ABBOTT-12P-163-0903140-00

PATIENT
  Sex: Female
  Weight: 97.61 kg

DRUGS (2)
  1. HUMIRA 40 MG/0.8 ML PEN [Suspect]
     Indication: PSORIASIS
     Dates: start: 200909, end: 201009
  2. HUMIRA 40 MG/0.8 ML PEN [Suspect]
     Indication: PSORIATIC ARTHROPATHY

REACTIONS (4)
  - Psoriasis [Unknown]
  - Psoriatic arthropathy [Unknown]
  - Skin plaque [Unknown]
  - Arthralgia [Unknown]
